FAERS Safety Report 7227039-5 (Version None)
Quarter: 2011Q1

REPORT INFORMATION
  Report Type: 
  Country: None (occurrence: None)
  Receive Date: 20110105
  Receipt Date: 20101222
  Transmission Date: 20110831
  Serious: Yes (Hospitalization)
  Sender: FDA-Public Use
  Company Number: WAES 1012USA03563

PATIENT
  Age: 72 Year
  Sex: Female

DRUGS (3)
  1. ELOTUZUMAB [Suspect]
     Indication: MULTIPLE MYELOMA
     Dosage: 10 MG/KG/DAILY IV
     Route: 042
     Dates: start: 20101020
  2. REVLIMID [Suspect]
     Indication: MULTIPLE MYELOMA
     Dosage: 25 MG/DAILY PO
     Route: 048
     Dates: start: 20101026
  3. DECADRON [Suspect]
     Indication: MULTIPLE MYELOMA
     Dosage: 40 MG/DAILY PO
     Route: 048
     Dates: start: 20101027

REACTIONS (7)
  - BLOOD SODIUM DECREASED [None]
  - BLOOD BILIRUBIN INCREASED [None]
  - SEPSIS [None]
  - PLATELET COUNT DECREASED [None]
  - CORYNEBACTERIUM INFECTION [None]
  - PNEUMONIA [None]
  - TACHYCARDIA [None]
